FAERS Safety Report 8064215-6 (Version None)
Quarter: 2012Q1

REPORT INFORMATION
  Report Type: 
  Country: None (occurrence: None)
  Receive Date: 20120123
  Receipt Date: 20110830
  Transmission Date: 20120608
  Serious: Yes (Other)
  Sender: FDA-Public Use
  Company Number: PHHY2011GB79334

PATIENT
  Age: 55 Year
  Sex: Male

DRUGS (3)
  1. SIMVASTATIN [Suspect]
     Dosage: 40 MG DAILY
  2. SIMVASTATIN [Suspect]
     Dosage: 40 MG DAILY
  3. SIMVASTATIN [Suspect]
     Dosage: UNK UKN, UNK

REACTIONS (6)
  - CARPAL TUNNEL SYNDROME [None]
  - PERIARTHRITIS [None]
  - PAIN [None]
  - NERVE COMPRESSION [None]
  - CONFUSIONAL STATE [None]
  - MYALGIA [None]
